FAERS Safety Report 25385364 (Version 1)
Quarter: 2025Q2

REPORT INFORMATION
  Report Type: Spontaneous
  Country: IT (occurrence: IT)
  Receive Date: 20250602
  Receipt Date: 20250602
  Transmission Date: 20250717
  Serious: Yes (Other)
  Sender: MYLAN
  Company Number: IT-MYLANLABS-2025M1046205

PATIENT
  Sex: Female

DRUGS (28)
  1. PROPRANOLOL [Suspect]
     Active Substance: PROPRANOLOL HYDROCHLORIDE
     Indication: Migraine without aura
     Dosage: 40 MILLIGRAM, QD
  2. PROPRANOLOL [Suspect]
     Active Substance: PROPRANOLOL HYDROCHLORIDE
     Dosage: 40 MILLIGRAM, QD
     Route: 065
  3. PROPRANOLOL [Suspect]
     Active Substance: PROPRANOLOL HYDROCHLORIDE
     Dosage: 40 MILLIGRAM, QD
     Route: 065
  4. PROPRANOLOL [Suspect]
     Active Substance: PROPRANOLOL HYDROCHLORIDE
     Dosage: 40 MILLIGRAM, QD
  5. TOPIRAMATE [Suspect]
     Active Substance: TOPIRAMATE
     Indication: Migraine without aura
     Dosage: 100 MILLIGRAM, QD (UP TO 100MG DAILY)
  6. TOPIRAMATE [Suspect]
     Active Substance: TOPIRAMATE
     Dosage: 100 MILLIGRAM, QD (UP TO 100MG DAILY)
     Route: 065
  7. TOPIRAMATE [Suspect]
     Active Substance: TOPIRAMATE
     Dosage: 100 MILLIGRAM, QD (UP TO 100MG DAILY)
     Route: 065
  8. TOPIRAMATE [Suspect]
     Active Substance: TOPIRAMATE
     Dosage: 100 MILLIGRAM, QD (UP TO 100MG DAILY)
  9. AMITRIPTYLINE [Suspect]
     Active Substance: AMITRIPTYLINE
     Indication: Migraine without aura
  10. AMITRIPTYLINE [Suspect]
     Active Substance: AMITRIPTYLINE
     Route: 065
  11. AMITRIPTYLINE [Suspect]
     Active Substance: AMITRIPTYLINE
     Route: 065
  12. AMITRIPTYLINE [Suspect]
     Active Substance: AMITRIPTYLINE
  13. VENLAFAXINE [Suspect]
     Active Substance: VENLAFAXINE HYDROCHLORIDE
     Indication: Migraine without aura
     Dosage: 75 MILLIGRAM, QD
  14. VENLAFAXINE [Suspect]
     Active Substance: VENLAFAXINE HYDROCHLORIDE
     Dosage: 75 MILLIGRAM, QD
     Route: 065
  15. VENLAFAXINE [Suspect]
     Active Substance: VENLAFAXINE HYDROCHLORIDE
     Dosage: 75 MILLIGRAM, QD
     Route: 065
  16. VENLAFAXINE [Suspect]
     Active Substance: VENLAFAXINE HYDROCHLORIDE
     Dosage: 75 MILLIGRAM, QD
  17. CANDESARTAN [Suspect]
     Active Substance: CANDESARTAN
     Indication: Migraine without aura
     Dosage: 8 MILLIGRAM, QD
  18. CANDESARTAN [Suspect]
     Active Substance: CANDESARTAN
     Dosage: 8 MILLIGRAM, QD
     Route: 065
  19. CANDESARTAN [Suspect]
     Active Substance: CANDESARTAN
     Dosage: 8 MILLIGRAM, QD
     Route: 065
  20. CANDESARTAN [Suspect]
     Active Substance: CANDESARTAN
     Dosage: 8 MILLIGRAM, QD
  21. FLUNARIZINE [Suspect]
     Active Substance: FLUNARIZINE
     Indication: Migraine without aura
     Dosage: 10 MILLIGRAM, QD
  22. FLUNARIZINE [Suspect]
     Active Substance: FLUNARIZINE
     Dosage: 10 MILLIGRAM, QD
     Route: 065
  23. FLUNARIZINE [Suspect]
     Active Substance: FLUNARIZINE
     Dosage: 10 MILLIGRAM, QD
     Route: 065
  24. FLUNARIZINE [Suspect]
     Active Substance: FLUNARIZINE
     Dosage: 10 MILLIGRAM, QD
  25. ONABOTULINUMTOXINA [Suspect]
     Active Substance: ONABOTULINUMTOXINA
     Indication: Migraine without aura
  26. ONABOTULINUMTOXINA [Suspect]
     Active Substance: ONABOTULINUMTOXINA
     Route: 065
  27. ONABOTULINUMTOXINA [Suspect]
     Active Substance: ONABOTULINUMTOXINA
     Route: 065
  28. ONABOTULINUMTOXINA [Suspect]
     Active Substance: ONABOTULINUMTOXINA

REACTIONS (2)
  - Drug ineffective [Unknown]
  - Off label use [Unknown]
